FAERS Safety Report 6628317-0 (Version None)
Quarter: 2010Q1

REPORT INFORMATION
  Report Type: 
  Country: None (occurrence: None)
  Receive Date: 20100311
  Receipt Date: 20100301
  Transmission Date: 20100710
  Serious: No
  Sender: FDA-Public Use
  Company Number: JP-ROCHE-682274

PATIENT
  Sex: Female

DRUGS (1)
  1. TAMIFLU [Suspect]
     Indication: INFLUENZA
     Route: 048
     Dates: start: 20100126, end: 20100126

REACTIONS (5)
  - ABNORMAL BEHAVIOUR [None]
  - DYSPNOEA [None]
  - ERYTHEMA [None]
  - MEMORY IMPAIRMENT [None]
  - TREMOR [None]
